FAERS Safety Report 4695029-2 (Version None)
Quarter: 2005Q2

REPORT INFORMATION
  Report Type: 
  Country: None (occurrence: None)
  Receive Date: 20050617
  Receipt Date: 20050608
  Transmission Date: 20051028
  Serious: Yes (Death)
  Sender: FDA-Public Use
  Company Number: 2005BH000180

PATIENT
  Age: 43 Year
  Sex: Female

DRUGS (3)
  1. ATIVAN [Suspect]
     Indication: DRUG USE FOR UNKNOWN INDICATION
     Dosage: PO
     Route: 048
  2. AMOXAPINE [Concomitant]
  3. LEVOMEPROMAZINE [Concomitant]

REACTIONS (7)
  - CARDIAC DISORDER [None]
  - COMPLETED SUICIDE [None]
  - DRUG TOXICITY [None]
  - FIBROSIS [None]
  - INTENTIONAL MISUSE [None]
  - MUSCLE ATROPHY [None]
  - PULMONARY OEDEMA [None]
